FAERS Safety Report 4366912-2 (Version None)
Quarter: 2004Q2

REPORT INFORMATION
  Report Type: 
  Country: None (occurrence: None)
  Receive Date: 20040526
  Receipt Date: 20040526
  Transmission Date: 20050107
  Serious: No
  Sender: FDA-Public Use
  Company Number: None

PATIENT
  Age: 68 Year
  Sex: Male
  Weight: 79.8331 kg

DRUGS (2)
  1. GEMCITABINE /ELI LILLY AND CO [Suspect]
     Indication: PANCREATIC CARCINOMA
     Dosage: 2000 MG IV
     Route: 042
     Dates: start: 20040422
  2. GEMCITABINE /ELI LILLY AND CO [Suspect]
     Indication: PANCREATIC CARCINOMA
     Dosage: 2000 MG IV
     Route: 042
     Dates: start: 20040429

REACTIONS (8)
  - DIFFERENTIAL WHITE BLOOD CELL COUNT ABNORMAL [None]
  - HAEMOGLOBIN ABNORMAL [None]
  - NAUSEA [None]
  - NEUTROPHIL COUNT ABNORMAL [None]
  - PLATELET COUNT ABNORMAL [None]
  - SINUS TACHYCARDIA [None]
  - SUPRAVENTRICULAR TACHYCARDIA [None]
  - VOMITING [None]
